FAERS Safety Report 4319148-5 (Version None)
Quarter: 2004Q1

REPORT INFORMATION
  Report Type: 
  Country: None (occurrence: None)
  Receive Date: 20040318
  Receipt Date: 20040312
  Transmission Date: 20041129
  Serious: Yes (Death, Hospitalization)
  Sender: FDA-Public Use
  Company Number: WAES 0403GBR00156

PATIENT
  Age: 93 Year
  Sex: Male

DRUGS (4)
  1. AMLODIPINE BESYLATE [Concomitant]
     Route: 048
  2. BETAHISTINE MALEATE [Concomitant]
     Route: 048
  3. CITALOPRAM [Concomitant]
     Route: 048
  4. VIOXX [Suspect]
     Route: 048
     Dates: end: 20031210

REACTIONS (7)
  - ASPIRATION [None]
  - CARDIAC ARREST [None]
  - DECUBITUS ULCER [None]
  - DUODENAL ULCER HAEMORRHAGE [None]
  - PNEUMONIA [None]
  - POST PROCEDURAL COMPLICATION [None]
  - STAPHYLOCOCCAL INFECTION [None]
